FAERS Safety Report 18293424 (Version 6)
Quarter: 2021Q3

REPORT INFORMATION
  Report Type: Spontaneous
  Country: JP (occurrence: JP)
  Receive Date: 20200922
  Receipt Date: 20210709
  Transmission Date: 20211014
  Serious: Yes (Hospitalization, Other)
  Sender: FDA-Public Use
  Company Number: JP-009507513-2009JPN001776J

PATIENT
  Age: 57 Year
  Sex: Male

DRUGS (7)
  1. ABRAXANE [Concomitant]
     Active Substance: PACLITAXEL
     Indication: NON-SMALL CELL LUNG CANCER
     Dosage: 100 MILLIGRAM/SQ. METER, EVERY 4 WEEKS
     Route: 041
     Dates: start: 20200703, end: 20200828
  2. RANMARK [Concomitant]
     Active Substance: DENOSUMAB
     Dosage: UNK UNK, QM
     Route: 051
     Dates: start: 20200706
  3. CARBOPLATIN. [Concomitant]
     Active Substance: CARBOPLATIN
     Indication: NON-SMALL CELL LUNG CANCER
     Dosage: ACU6, EVERY 4 WEEKS
     Route: 041
     Dates: start: 20200703, end: 20200828
  4. PARACETAMOL [Concomitant]
     Active Substance: ACETAMINOPHEN
     Indication: CANCER PAIN
     Dosage: 200 MILLIGRAM, TID
     Route: 048
     Dates: start: 202006
  5. KEYTRUDA [Suspect]
     Active Substance: PEMBROLIZUMAB
     Indication: NON-SMALL CELL LUNG CANCER
     Dosage: 200 MILLIGRAM, EVERY 4 WEEKS
     Route: 041
     Dates: start: 20200703, end: 20200828
  6. LANSOPRAZOLE. [Concomitant]
     Active Substance: LANSOPRAZOLE
     Dosage: 15 MILLIGRAM, QD
     Route: 048
  7. DENOTAS [Concomitant]
     Active Substance: CALCIUM CARBONATE\CHOLECALCIFEROL\MAGNESIUM CARBONATE
     Dosage: 1 TABLET, QD
     Route: 048
     Dates: start: 202007

REACTIONS (5)
  - Immune-mediated hepatitis [Unknown]
  - Autoimmune pancreatitis [Recovering/Resolving]
  - Off label use [Unknown]
  - Immune-mediated enterocolitis [Unknown]
  - Cholangitis sclerosing [Recovering/Resolving]

NARRATIVE: CASE EVENT DATE: 20200731
